FAERS Safety Report 15899569 (Version 8)
Quarter: 2019Q3

REPORT INFORMATION
  Report Type: Spontaneous
  Country: US (occurrence: US)
  Receive Date: 20190201
  Receipt Date: 20190805
  Transmission Date: 20191004
  Serious: No
  Sender: FDA-Public Use
  Company Number: US-PFIZER INC-2018454465

PATIENT
  Age: 63 Year
  Sex: Female
  Weight: 64.4 kg

DRUGS (7)
  1. RAPAMUNE [Suspect]
     Active Substance: SIROLIMUS
     Indication: COMPLICATIONS OF TRANSPLANTED HEART
     Dosage: 3.5 MG, DAILY (TAKE 1 TAB OF 0.5 MG BY MOUTH DAILY/ TAKE 3 TAB OF 1 MG BY MOUTH DAILY)
     Route: 048
  2. RAPAMUNE [Suspect]
     Active Substance: SIROLIMUS
     Dosage: 4 MG, DAILY (1MG TABLETS, 4 TABLETS PER DAY)
  3. RAPAMUNE [Suspect]
     Active Substance: SIROLIMUS
     Indication: HEART TRANSPLANT
     Dosage: 3 MG, DAILY (TAKE 3 TABS BY MOUTH DAILY)
     Route: 048
     Dates: start: 2018
  4. PROGRAF [Suspect]
     Active Substance: TACROLIMUS\TACROLIMUS ANHYDROUS
     Indication: HEART TRANSPLANT
     Dosage: 4 MG, 2X/DAY
  5. RAPAMUNE [Suspect]
     Active Substance: SIROLIMUS
     Dosage: 4 MG, DAILY [TAKE 4 TABS (4MG TOTAL) BY MOUTH DAILY]
     Route: 048
     Dates: start: 2018
  6. RAPAMUNE [Suspect]
     Active Substance: SIROLIMUS
     Dosage: UNK, (1MG AND THE HALF MG AND I THINK ITS NOW JUST 3MG)
  7. RAPAMUNE [Suspect]
     Active Substance: SIROLIMUS
     Indication: LEUKOPENIA
     Dosage: 3.5 MG, DAILY (TAKE 1 TAB OF 0.5 MG BY MOUTH DAILY/ TAKE 3 TAB OF 1 MG BY MOUTH DAILY)
     Route: 048

REACTIONS (6)
  - Pyrexia [Unknown]
  - Drug level decreased [Unknown]
  - Product dispensing error [Unknown]
  - Off label use [Unknown]
  - Diarrhoea [Not Recovered/Not Resolved]
  - Product use in unapproved indication [Unknown]

NARRATIVE: CASE EVENT DATE: 2018
